FAERS Safety Report 7709517-5 (Version None)
Quarter: 2011Q3

REPORT INFORMATION
  Report Type: 
  Country: None (occurrence: None)
  Receive Date: 20110825
  Receipt Date: 20110817
  Transmission Date: 20111222
  Serious: Yes (Other)
  Sender: FDA-Public Use
  Company Number: CHPA2011US10949

PATIENT
  Age: 52 Year
  Sex: Female

DRUGS (1)
  1. BENEFIBER W/ WHEAT DEXTRIN [Suspect]
     Dosage: 4 TSP, ONCE/SINGLE
     Route: 048
     Dates: start: 20110815, end: 20110815

REACTIONS (8)
  - FLATULENCE [None]
  - ABDOMINAL DISCOMFORT [None]
  - INCORRECT DOSE ADMINISTERED [None]
  - CHOLELITHIASIS [None]
  - VOMITING [None]
  - EXPIRED DRUG ADMINISTERED [None]
  - ABDOMINAL PAIN UPPER [None]
  - GASTROINTESTINAL PAIN [None]
